FAERS Safety Report 5258195-6 (Version None)
Quarter: 2007Q1

REPORT INFORMATION
  Report Type: 
  Country: None (occurrence: None)
  Receive Date: 20070307
  Receipt Date: 20070123
  Transmission Date: 20070707
  Serious: Yes (Hospitalization)
  Sender: FDA-Public Use
  Company Number: US-AMGEN-US213595

PATIENT
  Sex: Female

DRUGS (13)
  1. SENSIPAR [Suspect]
     Indication: HYPERPARATHYROIDISM SECONDARY
     Dates: start: 20060501
  2. ZOLOFT [Concomitant]
  3. XANAX [Concomitant]
  4. AMBIEN [Concomitant]
  5. ATARAX [Concomitant]
  6. OXYCODONE HCL [Concomitant]
  7. COUMADIN [Concomitant]
  8. AMIODARONE HCL [Concomitant]
  9. TOPROL-XL [Concomitant]
  10. REGLAN [Concomitant]
  11. ALLOPURINOL [Concomitant]
  12. POLYETHYLENE GLYCOL [Concomitant]
  13. PRANDIN [Concomitant]

REACTIONS (2)
  - ATRIAL FIBRILLATION [None]
  - HALLUCINATION [None]
